FAERS Safety Report 5300103-3 (Version None)
Quarter: 2007Q1

REPORT INFORMATION
  Report Type: 
  Country: None (occurrence: None)
  Receive Date: 20070201
  Receipt Date: 20061009
  Transmission Date: 20070707
  Serious: No
  Sender: FDA-Public Use
  Company Number: 2006PV022902

PATIENT
  Sex: Male

DRUGS (7)
  1. BYETTA [Suspect]
     Indication: DIABETES MELLITUS
     Dosage: 10 MCG ; SC
     Route: 058
     Dates: start: 20060301
  2. GLUCOTROL [Concomitant]
  3. METFORMIN HCL [Concomitant]
  4. AVANDIA [Concomitant]
  5. ZESTRIL [Concomitant]
  6. LIPITOR [Concomitant]
  7. ASPIRIN [Concomitant]

REACTIONS (4)
  - LOWER RESPIRATORY TRACT INFECTION [None]
  - NASOPHARYNGITIS [None]
  - SINUS CONGESTION [None]
  - SINUSITIS [None]
